FAERS Safety Report 7586742-8 (Version None)
Quarter: 2011Q3

REPORT INFORMATION
  Report Type: 
  Country: None (occurrence: None)
  Receive Date: 20110701
  Receipt Date: 20110623
  Transmission Date: 20111222
  Serious: Yes (Hospitalization)
  Sender: FDA-Public Use
  Company Number: JP-MERCK-1106USA03670

PATIENT
  Age: 82 Year
  Sex: Male

DRUGS (2)
  1. JANUVIA [Suspect]
     Indication: DIABETES MELLITUS
     Route: 048
     Dates: start: 20110524
  2. PHENYTOIN [Concomitant]
     Indication: EPILEPSY
     Route: 065

REACTIONS (2)
  - DRUG LEVEL INCREASED [None]
  - SPEECH DISORDER [None]
